FAERS Safety Report 20371064 (Version 1)
Quarter: 2022Q1

REPORT INFORMATION
  Report Type: Spontaneous
  Country: US (occurrence: US)
  Receive Date: 20220124
  Receipt Date: 20220124
  Transmission Date: 20220424
  Serious: Yes (Other)
  Sender: FDA-Public Use
  Company Number: US-AMGEN-USASP2022005622

PATIENT
  Age: 77 Year
  Sex: Female

DRUGS (1)
  1. PROLIA [Suspect]
     Active Substance: DENOSUMAB
     Indication: Osteopenia
     Dosage: UNK
     Route: 065

REACTIONS (8)
  - Osteonecrosis of jaw [Unknown]
  - Device breakage [Unknown]
  - Product use in unapproved indication [Unknown]
  - Dental caries [Unknown]
  - Jaw disorder [Unknown]
  - Impaired healing [Not Recovered/Not Resolved]
  - Bone lesion [Unknown]
  - Transplant failure [Unknown]
